FAERS Safety Report 4364424-3 (Version None)
Quarter: 2004Q2

REPORT INFORMATION
  Report Type: 
  Country: None (occurrence: None)
  Receive Date: 20040525
  Receipt Date: 20040405
  Transmission Date: 20050107
  Serious: Yes (Death)
  Sender: FDA-Public Use
  Company Number: JP-ROCHE-363887

PATIENT
  Age: 74 Year
  Sex: Male
  Weight: 33.5 kg

DRUGS (5)
  1. TAMIFLU [Suspect]
     Route: 048
     Dates: start: 20040328, end: 20040329
  2. LOXONIN [Concomitant]
     Route: 048
     Dates: start: 20040329, end: 20040329
  3. SELBEX [Concomitant]
     Indication: PROPHYLAXIS
     Route: 048
     Dates: start: 20040329, end: 20040329
  4. WARKMIN [Concomitant]
     Indication: OSTEOPOROSIS
     Route: 048
     Dates: start: 20040101, end: 20040329
  5. THYRADIN [Concomitant]
     Indication: HYPOTHYROIDISM
     Route: 048
     Dates: start: 20040101, end: 20040329

REACTIONS (3)
  - LEUKOPENIA [None]
  - LOBAR PNEUMONIA [None]
  - URINE OUTPUT DECREASED [None]
